FAERS Safety Report 6851437-2 (Version None)
Quarter: 2010Q3

REPORT INFORMATION
  Report Type: 
  Country: None (occurrence: None)
  Receive Date: 20100717
  Receipt Date: 20080117
  Transmission Date: 20110219
  Serious: No
  Sender: FDA-Public Use
  Company Number: US-PFIZER INC-2008007544

PATIENT
  Sex: Female
  Weight: 54.545 kg

DRUGS (4)
  1. CHANTIX [Suspect]
     Indication: SMOKING CESSATION THERAPY
     Dates: start: 20080104
  2. CENESTIN [Concomitant]
     Indication: HORMONE REPLACEMENT THERAPY
  3. CHOLESTEROL [Concomitant]
  4. ANTIDEPRESSANTS [Concomitant]

REACTIONS (6)
  - HEADACHE [None]
  - IRRITABILITY [None]
  - MALAISE [None]
  - MIGRAINE [None]
  - NAUSEA [None]
  - VOMITING [None]
